FAERS Safety Report 6162074-X (Version None)
Quarter: 2009Q2

REPORT INFORMATION
  Report Type: 
  Country: None (occurrence: None)
  Receive Date: 20090417
  Receipt Date: 20090403
  Transmission Date: 20091009
  Serious: Yes (Life-Threatening)
  Sender: FDA-Public Use
  Company Number: ACO_00502_2008

PATIENT
  Sex: Male

DRUGS (14)
  1. SIRDALUD /00740702/ (SIRDALUD TIZANIDINE HYDROCHLORIDE) (NOT SPECIFIED [Suspect]
     Indication: MUSCLE DISORDER
     Dosage: (4 MG)
     Dates: start: 20080524
  2. METOPROLOL TARTRATE [Concomitant]
  3. GENTAMICIN [Concomitant]
  4. COMILORIDE [Concomitant]
  5. GARAMYCIN /00047102/ [Concomitant]
  6. TORSEMIDE [Concomitant]
  7. AMOXYCILLIN /00249601/ [Concomitant]
  8. PERENTEROL /00838001/ [Concomitant]
  9. CLAMOXYL /00249602/ [Concomitant]
  10. PANTOPRAZOLE SODIUM [Concomitant]
  11. AMOXYCILLIN /00249601/ [Concomitant]
  12. PERENTEROL /00838001/ [Concomitant]
  13. CLAMOXYL /00249602/ [Concomitant]
  14. PANTOPRAZOLE SODIUM [Concomitant]

REACTIONS (10)
  - ASTHENIA [None]
  - ATRIAL FLUTTER [None]
  - BRADYCARDIA [None]
  - C-REACTIVE PROTEIN INCREASED [None]
  - COLD SWEAT [None]
  - DIZZINESS [None]
  - HYPOTENSION [None]
  - MALAISE [None]
  - NO THERAPEUTIC RESPONSE [None]
  - PALLOR [None]
